FAERS Safety Report 9942215 (Version 1)
Quarter: 2014Q1

REPORT INFORMATION
  Report Type: Spontaneous
  Country: FR (occurrence: FR)
  Receive Date: 20140303
  Receipt Date: 20140303
  Transmission Date: 20141002
  Serious: Yes (Death, Hospitalization, Disabling)
  Sender: FDA-Public Use
  Company Number: FR-TEVA-464480ISR

PATIENT
  Age: 36 Year
  Sex: Male

DRUGS (13)
  1. DOXORUBICINE TEVA 50MG/25ML [Suspect]
     Indication: B-CELL LYMPHOMA
     Dosage: 600 MG IN 4 COURSES
     Route: 042
     Dates: start: 20070530
  2. BLEOMYCINE BELLON 15MG [Suspect]
     Indication: B-CELL LYMPHOMA
     Dosage: 80 MG IN 4 COURSES
     Route: 042
     Dates: start: 20070530
  3. MABTHERA 500MG CONCENTRADO PARA SOLUCION PARA PERFUSION, 1 VIAL DE 50M [Suspect]
     Indication: B-CELL LYMPHOMA
     Dosage: 4500MG IN 6 COURSES
     Route: 042
     Dates: start: 20070530
  4. ENDOXAN 1000MG [Suspect]
     Indication: B-CELL LYMPHOMA
     Dosage: 9600MG IN 4 COURSES
     Route: 042
     Dates: start: 20070530
  5. ELDISINE [Suspect]
     Indication: B-CELL LYMPHOMA
     Dosage: 32 MG IN 4 COURSES
     Route: 042
     Dates: start: 20070530
  6. METHOTREXATE MERCK [Suspect]
     Indication: B-CELL LYMPHOMA
     Dosage: 11970 MG IN 2 COURSES
     Route: 042
     Dates: start: 20070717
  7. ETOPOPHOS FOR INJ 100 MG [Suspect]
     Indication: B-CELL LYMPHOMA
     Dosage: 1200MG IN 2 COURSES
     Route: 042
     Dates: start: 20070505
  8. HOLOXAN 3.00 G [Suspect]
     Indication: B-CELL LYMPHOMA
     Dosage: 6000MG IN 2 COURSES
     Route: 042
  9. BICNU [Suspect]
     Indication: B-CELL LYMPHOMA
     Dosage: 600 MILLIGRAM DAILY;
     Route: 042
     Dates: start: 20070829, end: 20070829
  10. ARACYTINE [Suspect]
     Indication: B-CELL LYMPHOMA
     Dosage: 1600 MILLIGRAM DAILY;
     Route: 042
     Dates: start: 20070829, end: 20070829
  11. ETOPOSIDE MERCK [Suspect]
     Indication: B-CELL LYMPHOMA
     Dosage: 1600 MILLIGRAM DAILY;
     Route: 042
     Dates: start: 20070829, end: 20070829
  12. ALKERAN [Suspect]
     Indication: B-CELL LYMPHOMA
     Dosage: 280 MILLIGRAM DAILY;
     Route: 042
     Dates: start: 20070829, end: 20070829
  13. PREDNISONE [Concomitant]
     Indication: B-CELL LYMPHOMA
     Dates: start: 20070530

REACTIONS (8)
  - Pulmonary fibrosis [Fatal]
  - Aspergillus infection [Unknown]
  - Hypoventilation [Unknown]
  - Respiratory acidosis [Unknown]
  - Haemodynamic instability [Unknown]
  - Pneumocystis jirovecii pneumonia [Unknown]
  - Acute respiratory failure [Unknown]
  - Pneumonia cytomegaloviral [Unknown]
